FAERS Safety Report 9296648 (Version 2)
Quarter: 2013Q2

REPORT INFORMATION
  Report Type: Spontaneous
  Country: US (occurrence: US)
  Receive Date: 20130517
  Receipt Date: 20130620
  Transmission Date: 20140414
  Serious: Yes (Hospitalization, Other)
  Sender: FDA-Public Use
  Company Number: US-PFIZER INC-2013148236

PATIENT
  Age: 58 Year
  Sex: Male

DRUGS (3)
  1. TORISEL [Suspect]
     Indication: RENAL CELL CARCINOMA
     Dosage: 25 MG, WEEKLY
     Route: 042
     Dates: start: 20130417
  2. MORPHINE SULFATE [Concomitant]
     Indication: PAIN
     Dosage: SR, 60 MG, 2X/DAY
     Route: 048
     Dates: start: 20130316
  3. MSIR [Concomitant]
     Indication: PAIN
     Dosage: 15 MG, EVERY 4 HOURS AS NEEDED
     Route: 048
     Dates: start: 20130316

REACTIONS (4)
  - Pyrexia [Recovered/Resolved]
  - Pancytopenia [Unknown]
  - Lung infiltration [Unknown]
  - Off label use [Unknown]
